FAERS Safety Report 9440195 (Version 1)
Quarter: 2013Q3

REPORT INFORMATION
  Report Type: Report from Study
  Country: NL (occurrence: NL)
  Receive Date: 20130805
  Receipt Date: 20130805
  Transmission Date: 20140515
  Serious: Yes (Hospitalization)
  Sender: FDA-Public Use
  Company Number: PHHO2011NL020674

PATIENT
  Age: 62 Year
  Sex: Female
  Weight: 92 kg

DRUGS (7)
  1. PROGRAF [Suspect]
     Indication: RENAL TRANSPLANT
     Dosage: 12 MG, BID
     Route: 048
     Dates: start: 20111011
  2. PREDNISOLONE SANDOZ [Suspect]
     Indication: RENAL TRANSPLANT
     Dosage: 20 MG, ONCE/SINGLE
     Route: 048
     Dates: start: 20111011
  3. PREDNISOLONE SANDOZ [Suspect]
     Dosage: UNK
     Dates: start: 20130726
  4. MYFORTIC [Suspect]
     Indication: RENAL TRANSPLANT
     Dosage: 225 MG, BID
     Route: 048
     Dates: start: 20110111
  5. VALCYTE [Concomitant]
     Indication: PROPHYLAXIS
     Dosage: UNK
  6. CO-TRIMOXAZOLE [Concomitant]
     Indication: PNEUMOCYSTIS JIROVECII PNEUMONIA
     Dosage: UNK
  7. OMEPRAZOLE [Concomitant]
     Dosage: UNK

REACTIONS (2)
  - Urosepsis [Recovering/Resolving]
  - Atrial fibrillation [Recovered/Resolved]
